FAERS Safety Report 5483630-8 (Version None)
Quarter: 2007Q4

REPORT INFORMATION
  Report Type: 
  Country: None (occurrence: None)
  Receive Date: 20071010
  Receipt Date: 20071002
  Transmission Date: 20080405
  Serious: Yes (Other)
  Sender: FDA-Public Use
  Company Number: CHPA2007US10316

PATIENT
  Age: 42 Year
  Sex: Female
  Weight: 90.7 kg

DRUGS (1)
  1. NICOTINE [Suspect]
     Indication: SMOKING CESSATION THERAPY
     Dosage: 21 MG, QD, TRANSDERMAL
     Route: 062
     Dates: start: 20070929, end: 20071002

REACTIONS (2)
  - HYPOAESTHESIA ORAL [None]
  - VISUAL ACUITY REDUCED [None]
